FAERS Safety Report 5463229-X (Version None)
Quarter: 2007Q3

REPORT INFORMATION
  Report Type: 
  Country: None (occurrence: None)
  Receive Date: 20070920
  Receipt Date: 20070914
  Transmission Date: 20080115
  Serious: Yes (Hospitalization)
  Sender: FDA-Public Use
  Company Number: D0054433A

PATIENT
  Age: 71 Year
  Sex: Female

DRUGS (8)
  1. REQUIP [Suspect]
     Dosage: 2MG PER DAY
     Route: 065
     Dates: start: 20070505
  2. MIRTAZAPINE [Suspect]
     Dosage: 15MG PER DAY
     Route: 065
  3. MADOPAR [Concomitant]
     Route: 065
  4. ENTACAPONE [Concomitant]
     Route: 065
  5. PK-MERZ [Concomitant]
     Route: 065
  6. PROTELOS [Concomitant]
     Route: 065
  7. LEVOTHYROXINE SODIUM [Concomitant]
     Route: 065
  8. RIVOTRIL [Concomitant]
     Route: 065

REACTIONS (4)
  - BREAST PAIN [None]
  - DYSPNOEA [None]
  - MUSCLE SPASMS [None]
  - PARAESTHESIA [None]
